FAERS Safety Report 5210413-6 (Version None)
Quarter: 2007Q1

REPORT INFORMATION
  Report Type: 
  Country: None (occurrence: None)
  Receive Date: 20070116
  Receipt Date: 20070116
  Transmission Date: 20070707
  Serious: Yes (Life-Threatening, Hospitalization)
  Sender: FDA-Public Use
  Company Number: None

PATIENT
  Age: 56 Year
  Sex: Female

DRUGS (28)
  1. ABRAXANE [Suspect]
     Indication: FALLOPIAN TUBE CANCER
     Dosage: 193.0 MG@100MG/M2  D1,D8, D15  042
     Dates: start: 20061004
  2. CARBOPLATIN [Suspect]
     Indication: FALLOPIAN TUBE CANCER
     Dosage: 585.0MG@10/MG/ML  D1 EVERY 28 DAYS  042
     Dates: start: 20060802
  3. ROBITUSSIN [Concomitant]
  4. HUMALOG [Concomitant]
  5. TRANDATE [Concomitant]
  6. IMODIUM [Concomitant]
  7. ATIVAN [Concomitant]
  8. MILK OF MAGNESIA [Concomitant]
  9. TYLENOL [Concomitant]
  10. DULCOLAX [Concomitant]
  11. D50W ABBOJECT [Concomitant]
  12. GLUTOSE 40% (DEXTROSE GEL) [Concomitant]
  13. COLACE [Concomitant]
  14. FENTANYL TRANSDERMAL SYSTEM [Concomitant]
  15. GLUCAGON [Concomitant]
  16. MAALOX EXTRA [Concomitant]
  17. NITROSTAT [Concomitant]
  18. ATROPINE SULFATE [Concomitant]
  19. LOVENOX [Concomitant]
  20. PEPCID [Concomitant]
  21. LASIX [Concomitant]
  22. GLUCERNA SHAKE [Concomitant]
  23. MYCOSTATIN [Concomitant]
  24. K-DUR 10 [Concomitant]
  25. VENTOLIN [Concomitant]
  26. PNEUMOVAX 23 [Concomitant]
  27. GLUTASOLVE [Concomitant]
  28. OXEPA [Concomitant]

REACTIONS (10)
  - ACUTE RESPIRATORY DISTRESS SYNDROME [None]
  - ASTHENIA [None]
  - BLOOD CHLORIDE DECREASED [None]
  - BLOOD SODIUM DECREASED [None]
  - BODY TEMPERATURE INCREASED [None]
  - DYSPNOEA [None]
  - OEDEMA PERIPHERAL [None]
  - PNEUMONIA [None]
  - RESPIRATORY RATE INCREASED [None]
  - STAPHYLOCOCCAL INFECTION [None]
